FAERS Safety Report 6463559-9 (Version None)
Quarter: 2009Q4

REPORT INFORMATION
  Report Type: 
  Country: None (occurrence: None)
  Receive Date: 20091123
  Receipt Date: 20091106
  Transmission Date: 20100525
  Serious: Yes (Hospitalization, Other)
  Sender: FDA-Public Use
  Company Number: ACO_00618_2009

PATIENT
  Sex: Female
  Weight: 54 kg

DRUGS (4)
  1. TIZANIDINE HYDROCHLORIDE [Suspect]
     Indication: NECK PAIN
     Dosage: (1 MG BID ORAL)
     Route: 048
     Dates: start: 20080830, end: 20081020
  2. TEGRETOL [Suspect]
     Indication: OCCIPITAL NEURALGIA
     Dosage: (100 MG QD ORAL)
     Route: 048
     Dates: start: 20080830, end: 20081020
  3. CEPHADOL (CEPHADOL - DIFENIDOL HYDROCHLORIDE) (NOT SPECIFIED) [Suspect]
     Indication: VERTIGO
     Dosage: (25 MG BID ORAL)
     Route: 048
     Dates: start: 20080830, end: 20081020
  4. GRANDAXIN [Concomitant]

REACTIONS (18)
  - CHOLECYSTITIS [None]
  - CHOLELITHIASIS [None]
  - DRUG ERUPTION [None]
  - FACE OEDEMA [None]
  - GAMMA-GLUTAMYLTRANSFERASE INCREASED [None]
  - GENERALISED OEDEMA [None]
  - HEPATIC FUNCTION ABNORMAL [None]
  - HYPOPROTEINAEMIA [None]
  - LYMPHOCYTE STIMULATION TEST POSITIVE [None]
  - MUCOSAL INFLAMMATION [None]
  - OCULOMUCOCUTANEOUS SYNDROME [None]
  - PYREXIA [None]
  - RASH [None]
  - RASH GENERALISED [None]
  - SKIN EXFOLIATION [None]
  - STEVENS-JOHNSON SYNDROME [None]
  - STOMATITIS [None]
  - TOXIC EPIDERMAL NECROLYSIS [None]
